FAERS Safety Report 11891193 (Version 1)
Quarter: 2016Q1

REPORT INFORMATION
  Report Type: Spontaneous
  Country: US (occurrence: None)
  Receive Date: 20160105
  Receipt Date: 20160105
  Transmission Date: 20160526
  Serious: No
  Sender: FDA-Public Use
  Company Number: None

PATIENT

DRUGS (2)
  1. METOCLOPRAMIDE METOCLOPRAMIDE PHARMACEUTICAL ASSOCIATES, INC. [Suspect]
     Active Substance: METOCLOPRAMIDE
     Dosage: SOLUTION?ORAL?10MG/10ML?UNIT DOSE CUP?10 ML
     Route: 048
  2. MEGESTROL ACETATE MEGESTROL ACETATE PHARMACEUTICAL ASSOCIATES, INC . [Suspect]
     Active Substance: MEGESTROL ACETATE
     Dosage: SUSPENSION ?ORAL?400MG/10ML?UNIT DOSE CUP?10 ML
     Route: 048

REACTIONS (2)
  - Intercepted drug dispensing error [None]
  - Product packaging confusion [None]
